FAERS Safety Report 8834686 (Version 4)
Quarter: 2015Q2

REPORT INFORMATION
  Report Type: Report from Study
  Country: US (occurrence: US)
  Receive Date: 20121010
  Receipt Date: 20150403
  Transmission Date: 20150821
  Serious: Yes (Hospitalization, Other)
  Sender: FDA-Public Use
  Company Number: US-TEVA-363575USA

PATIENT
  Age: 56 Year
  Sex: Female
  Weight: 92 kg

DRUGS (21)
  1. DOXORUBICIN [Suspect]
     Active Substance: DOXORUBICIN
     Indication: SARCOMA
     Route: 065
     Dates: start: 20120705, end: 20120705
  2. DOXORUBICIN [Suspect]
     Active Substance: DOXORUBICIN
     Dosage: TOTAL DOSE 116 MG, BOLUS, CYCLE 4
     Route: 065
     Dates: start: 20120905
  3. ONDANSETRON [Concomitant]
     Active Substance: ONDANSETRON
     Dates: start: 20120711
  4. PEGFILGRASTIM [Concomitant]
     Active Substance: PEGFILGRASTIM
     Dates: start: 20120912
  5. TH-302 [Suspect]
     Active Substance: EVOFOSFAMIDE
     Indication: SARCOMA
     Dates: start: 20120705, end: 20120705
  6. DEXAMETHASONE. [Concomitant]
     Active Substance: DEXAMETHASONE
     Dates: start: 20120705
  7. FOSAPREPITANT [Concomitant]
     Active Substance: FOSAPREPITANT
     Dates: start: 20120705
  8. PALONOSETRON [Concomitant]
     Active Substance: PALONOSETRON
     Dates: start: 20120705
  9. BENADRYL [Concomitant]
     Active Substance: DIPHENHYDRAMINE HYDROCHLORIDE
     Dates: start: 2010
  10. PROCHLORPERAZINE MALEATE. [Concomitant]
     Active Substance: PROCHLORPERAZINE MALEATE
     Dates: start: 20120705
  11. LORAZEPAM. [Concomitant]
     Active Substance: LORAZEPAM
     Dates: start: 20120705
  12. SUPPLEMENTAL OXYGEN [Concomitant]
     Active Substance: UNSPECIFIED INGREDIENT
  13. DEXAMETHASONE. [Suspect]
     Active Substance: DEXAMETHASONE
     Indication: PROPHYLAXIS OF NAUSEA AND VOMITING
     Route: 048
     Dates: start: 20120706
  14. CIPROFLOXACIN. [Concomitant]
     Active Substance: CIPROFLOXACIN
     Dates: start: 20120907, end: 20120916
  15. GENERIC LAXATIVE [Concomitant]
     Dates: start: 2010
  16. PREPERATION H [Concomitant]
     Dates: start: 20120705
  17. ASPIRIN. [Concomitant]
     Active Substance: ASPIRIN
     Dates: start: 20120616
  18. TYLENOL [Concomitant]
     Active Substance: ACETAMINOPHEN
     Dates: start: 1992
  19. ALEVE [Concomitant]
     Active Substance: NAPROXEN SODIUM
     Dates: start: 20120705
  20. LIDOCAINE. [Concomitant]
     Active Substance: LIDOCAINE
     Dates: start: 20120705
  21. TH-302 [Suspect]
     Active Substance: EVOFOSFAMIDE
     Dosage: 225 MG/M2 / 466 MG /CYCLE #4/DAY 8;
     Route: 065
     Dates: start: 20120912

REACTIONS (3)
  - Urinary tract infection [Recovered/Resolved]
  - Rectal fissure [Recovered/Resolved]
  - Pyrexia [Recovered/Resolved]

NARRATIVE: CASE EVENT DATE: 20120922
